FAERS Safety Report 25272852 (Version 3)
Quarter: 2025Q2

REPORT INFORMATION
  Report Type: Other
  Country: US (occurrence: US)
  Receive Date: 20250506
  Receipt Date: 20250519
  Transmission Date: 20250716
  Serious: No
  Sender: TRAVERE THERAPEUTICS
  Company Number: US-TRAVERE-2025TVT00514

PATIENT
  Age: 27 Year
  Sex: Male

DRUGS (4)
  1. FILSPARI [Suspect]
     Active Substance: SPARSENTAN
     Indication: IgA nephropathy
     Route: 048
     Dates: start: 202503
  2. FILSPARI [Suspect]
     Active Substance: SPARSENTAN
     Dosage: EXPIRY DATE: 30-MAY-2026
     Route: 048
     Dates: start: 20250404
  3. FUROSEMIDE [Suspect]
     Active Substance: FUROSEMIDE
     Indication: Peripheral swelling
     Dates: start: 202504
  4. TARPEYO [Suspect]
     Active Substance: BUDESONIDE
     Indication: Product used for unknown indication

REACTIONS (3)
  - Peripheral swelling [None]
  - Pollakiuria [Unknown]
  - Pain in extremity [Unknown]
